FAERS Safety Report 7709343-7 (Version None)
Quarter: 2011Q3

REPORT INFORMATION
  Report Type: 
  Country: None (occurrence: None)
  Receive Date: 20110825
  Receipt Date: 20110822
  Transmission Date: 20111222
  Serious: Yes (Other)
  Sender: FDA-Public Use
  Company Number: FR-PFIZER INC-2011193385

PATIENT
  Age: 78 Year
  Sex: Female

DRUGS (5)
  1. PREXIDINE [Concomitant]
     Dosage: UNK
  2. ALDACTONE [Concomitant]
     Dosage: UNK
  3. ATORVASTATIN CALCIUM [Suspect]
     Indication: BLOOD CHOLESTEROL
     Dosage: 20 MG, UNK
  4. CELECTOL [Concomitant]
     Dosage: UNK
  5. DEXTROL [Concomitant]
     Dosage: UNK

REACTIONS (5)
  - BALANCE DISORDER [None]
  - MYALGIA [None]
  - AMNESIA [None]
  - FATIGUE [None]
  - VISUAL IMPAIRMENT [None]
